FAERS Safety Report 8553500-7 (Version None)
Quarter: 2012Q3

REPORT INFORMATION
  Report Type: 
  Country: None (occurrence: None)
  Receive Date: 20120731
  Receipt Date: 20120725
  Transmission Date: 20120928
  Serious: Yes (Death)
  Sender: FDA-Public Use
  Company Number: US-PFIZER INC-2012165221

PATIENT
  Sex: Female

DRUGS (2)
  1. VFEND [Suspect]
     Indication: ASPERGILLOSIS
     Dosage: 200 MG, 2X/DAY
     Route: 048
     Dates: start: 20120404
  2. VFEND [Suspect]
     Dosage: 200 MG, 2X/DAY
     Route: 048

REACTIONS (1)
  - RESPIRATORY FAILURE [None]
